FAERS Safety Report 11245417 (Version 1)
Quarter: 2015Q3

REPORT INFORMATION
  Report Type: Report from Study
  Country: IL (occurrence: IL)
  Receive Date: 20150707
  Receipt Date: 20150707
  Transmission Date: 20151125
  Serious: Yes (Hospitalization)
  Sender: FDA-Public Use
  Company Number: IL-ABBVIE-15P-082-1417514-00

PATIENT
  Age: 66 Year
  Sex: Female

DRUGS (2)
  1. VIEKIRAX [Suspect]
     Active Substance: OMBITASVIR\PARITAPREVIR\RITONAVIR
     Indication: HEPATITIS C
     Dosage: 2 TAB PER DAY
     Route: 048
     Dates: start: 20150501, end: 20150625
  2. EXVIERA [Suspect]
     Active Substance: DASABUVIR
     Indication: HEPATITIS C
     Dosage: 2 TAB PER DAY
     Route: 048
     Dates: start: 20150501, end: 20150625

REACTIONS (3)
  - Urinary tract infection [Recovered/Resolved]
  - Cholelithiasis [Unknown]
  - Vomiting [Unknown]

NARRATIVE: CASE EVENT DATE: 20150625
